FAERS Safety Report 23328638 (Version 2)
Quarter: 2024Q1

REPORT INFORMATION
  Report Type: Report from Study
  Country: EG (occurrence: EG)
  Receive Date: 20231221
  Receipt Date: 20240103
  Transmission Date: 20240410
  Serious: Yes (Hospitalization, Other)
  Sender: FDA-Public Use
  Company Number: EG-JNJFOC-20231223531

PATIENT
  Age: 84 Year
  Sex: Male
  Weight: 80 kg

DRUGS (11)
  1. DARZALEX [Suspect]
     Active Substance: DARATUMUMAB
     Indication: Plasma cell myeloma
     Dosage: 3 VIALS/WEEK (1200MG)?1ST DOSE
     Route: 065
     Dates: start: 20231205, end: 20231206
  2. DARZALEX [Suspect]
     Active Substance: DARATUMUMAB
     Dosage: 2ND DOSE
     Route: 065
     Dates: start: 20231212
  3. DARZALEX [Suspect]
     Active Substance: DARATUMUMAB
     Dosage: 3RD DOSE
     Route: 065
     Dates: start: 20231219
  4. DEXAMETHASONE [Concomitant]
     Active Substance: DEXAMETHASONE
     Indication: Product used for unknown indication
     Route: 065
  5. NITRO MAK RETARD [Concomitant]
     Indication: Anticoagulant therapy
     Dosage: 2 TABLETS/DAY
  6. IKSARONT [Concomitant]
     Indication: Anticoagulant therapy
  7. CORDARONE [Concomitant]
     Active Substance: AMIODARONE HYDROCHLORIDE
     Indication: Arrhythmia prophylaxis
  8. CYCLOPHOSPHAMIDE [Concomitant]
     Active Substance: CYCLOPHOSPHAMIDE
     Indication: Product used for unknown indication
     Route: 065
  9. CONTROLOC [Concomitant]
     Active Substance: PANTOPRAZOLE SODIUM
     Indication: Product used for unknown indication
     Route: 065
  10. ZOFRAN [Concomitant]
     Active Substance: ONDANSETRON HYDROCHLORIDE
     Indication: Product used for unknown indication
     Route: 065
  11. VELCADE [Concomitant]
     Active Substance: BORTEZOMIB
     Indication: Product used for unknown indication
     Route: 065

REACTIONS (2)
  - Pulmonary oedema [Recovered/Resolved]
  - Mitral valve incompetence [Unknown]

NARRATIVE: CASE EVENT DATE: 20231206
